FAERS Safety Report 4540629-3 (Version None)
Quarter: 2004Q4

REPORT INFORMATION
  Report Type: 
  Country: None (occurrence: None)
  Receive Date: 20041222
  Receipt Date: 20041208
  Transmission Date: 20050328
  Serious: Yes (Life-Threatening, Hospitalization)
  Sender: FDA-Public Use
  Company Number: 2004IM000992

PATIENT
  Age: 50 Year
  Sex: Male

DRUGS (1)
  1. INFERAX (INTERFERON ALFACON-1) [Suspect]
     Indication: HEPATITIS C
     Dosage: 9 UG; QD; SUBCUTANEOUS
     Route: 058
     Dates: start: 20040916, end: 20041119

REACTIONS (1)
  - HEPATIC ENCEPHALOPATHY [None]
